FAERS Safety Report 19924766 (Version 2)
Quarter: 2022Q1

REPORT INFORMATION
  Report Type: Spontaneous
  Country: JP (occurrence: JP)
  Receive Date: 20211006
  Receipt Date: 20220128
  Transmission Date: 20220423
  Serious: Yes (Death, Other)
  Sender: FDA-Public Use
  Company Number: JP-PFIZER INC-202101282012

PATIENT
  Age: 81 Year
  Sex: Male
  Weight: 48 kg

DRUGS (7)
  1. XELJANZ [Suspect]
     Active Substance: TOFACITINIB CITRATE
     Indication: Colitis ulcerative
     Dosage: 10 MG, 2X/DAY
     Route: 048
     Dates: start: 20200821, end: 20210825
  2. XELJANZ [Suspect]
     Active Substance: TOFACITINIB CITRATE
     Dosage: 5 MG, 2X/DAY
     Route: 048
     Dates: start: 20210826, end: 20211012
  3. XELJANZ [Suspect]
     Active Substance: TOFACITINIB CITRATE
     Dosage: 10 MG, 2X/DAY
     Route: 048
     Dates: start: 20211013
  4. ASACOL [Concomitant]
     Active Substance: MESALAMINE
     Dosage: 2400 MG
     Dates: start: 200912
  5. ASACOL [Concomitant]
     Active Substance: MESALAMINE
     Dosage: 600 MG
     Route: 048
     Dates: start: 201802
  6. ASACOL [Concomitant]
     Active Substance: MESALAMINE
     Dosage: 2400 MG
     Route: 048
     Dates: start: 201811
  7. ASACOL [Concomitant]
     Active Substance: MESALAMINE
     Dosage: 1200 MG, 3X/DAY
     Route: 048
     Dates: start: 201905

REACTIONS (2)
  - Lung neoplasm malignant [Fatal]
  - Colitis ulcerative [Unknown]

NARRATIVE: CASE EVENT DATE: 20210909
